FAERS Safety Report 21671181 (Version 1)
Quarter: 2022Q4

REPORT INFORMATION
  Report Type: Spontaneous
  Country: US (occurrence: US)
  Receive Date: 20221202
  Receipt Date: 20221202
  Transmission Date: 20230113
  Serious: No
  Sender: FDA-Public Use
  Company Number: US-SANOFI-01383310

PATIENT
  Sex: Male

DRUGS (4)
  1. PLAVIX [Suspect]
     Active Substance: CLOPIDOGREL BISULFATE
     Indication: Myocardial infarction
     Dosage: 8 TABLETS THE FIRST DAY
     Dates: start: 2022, end: 2022
  2. PLAVIX [Suspect]
     Active Substance: CLOPIDOGREL BISULFATE
     Dosage: 1 DF, QD (1 TABLET DAILY)
     Dates: start: 2022
  3. BRILINTA [Concomitant]
     Active Substance: TICAGRELOR
     Indication: Myocardial infarction
     Dosage: UNK
     Dates: start: 202203
  4. PANTOPRAZOLE [Concomitant]
     Active Substance: PANTOPRAZOLE
     Indication: Gastrointestinal disorder
     Dosage: UNK

REACTIONS (1)
  - Product prescribing error [Unknown]

NARRATIVE: CASE EVENT DATE: 20220101
